FAERS Safety Report 22398174 (Version 1)
Quarter: 2023Q2

REPORT INFORMATION
  Report Type: Spontaneous
  Country: US (occurrence: US)
  Receive Date: 20230602
  Receipt Date: 20230602
  Transmission Date: 20230721
  Serious: Yes (Hospitalization)
  Sender: FDA-Public Use
  Company Number: US-SA-SAC20230601001186

PATIENT
  Sex: Male
  Weight: 103 kg

DRUGS (5)
  1. DUPIXENT [Suspect]
     Active Substance: DUPILUMAB
     Indication: Nasal polyps
     Dosage: 300 MG, QOW
     Route: 058
     Dates: start: 20211110
  2. VITAMIN D3 [Concomitant]
     Active Substance: CHOLECALCIFEROL
  3. MINERALS\VITAMINS [Concomitant]
     Active Substance: MINERALS\VITAMINS
  4. MECLIZINE HYDROCHLORIDE [Concomitant]
     Active Substance: MECLIZINE HYDROCHLORIDE
  5. LISINOPRIL [Concomitant]
     Active Substance: LISINOPRIL

REACTIONS (5)
  - Inner ear inflammation [Recovered/Resolved]
  - Fungal foot infection [Recovered/Resolved]
  - Dizziness [Recovered/Resolved]
  - Sinusitis [Unknown]
  - Rash [Recovered/Resolved]

NARRATIVE: CASE EVENT DATE: 20220101
